FAERS Safety Report 17178793 (Version 1)
Quarter: 2019Q4

REPORT INFORMATION
  Report Type: Spontaneous
  Country: US (occurrence: US)
  Receive Date: 20191219
  Receipt Date: 20191219
  Transmission Date: 20200122
  Serious: Yes (Hospitalization, Other)
  Sender: FDA-Public Use
  Company Number: US-GILEAD-2019-0443343

PATIENT
  Age: 63 Year
  Sex: Male

DRUGS (9)
  1. HEPARIN [Concomitant]
     Active Substance: HEPARIN SODIUM
  2. PRENATAL MULTIVITAMIN + DHA [Concomitant]
  3. VITAMIN D3 [Concomitant]
     Active Substance: CHOLECALCIFEROL
  4. RIBASPHERE [Suspect]
     Active Substance: RIBAVIRIN
     Indication: PRODUCT USED FOR UNKNOWN INDICATION
     Dosage: 1200 MG, QD
     Route: 048
     Dates: start: 20131030, end: 20140107
  5. TACROLIMUS. [Concomitant]
     Active Substance: TACROLIMUS
  6. HARVONI [Suspect]
     Active Substance: LEDIPASVIR\SOFOSBUVIR
     Indication: HEPATITIS C
     Dosage: 1 DOSAGE FORM
     Route: 048
     Dates: start: 20131030
  7. LASIX + K [Concomitant]
     Active Substance: FUROSEMIDE\POTASSIUM CHLORIDE
     Dosage: 20 MG, QD
     Route: 048
     Dates: start: 20140106
  8. MAGNESIUM OXIDE. [Concomitant]
     Active Substance: MAGNESIUM OXIDE
  9. ALBUMIN HUMAN [Concomitant]
     Active Substance: ALBUMIN HUMAN

REACTIONS (12)
  - Anaemia [Not Recovered/Not Resolved]
  - Diarrhoea [Unknown]
  - Orthopnoea [Unknown]
  - Atelectasis [Unknown]
  - Fatigue [Not Recovered/Not Resolved]
  - Pleural effusion [Not Recovered/Not Resolved]
  - Waist circumference increased [Unknown]
  - Haemothorax [Unknown]
  - Weight decreased [Unknown]
  - Nephrolithiasis [Unknown]
  - Bone marrow failure [Unknown]
  - Rash macular [Unknown]

NARRATIVE: CASE EVENT DATE: 20140106
